FAERS Safety Report 4962810-1 (Version None)
Quarter: 2006Q2

REPORT INFORMATION
  Report Type: 
  Country: None (occurrence: None)
  Receive Date: 20060405
  Receipt Date: 20060118
  Transmission Date: 20061013
  Serious: Yes (Hospitalization, Other)
  Sender: FDA-Public Use
  Company Number: PHRM2006FR00556

PATIENT
  Age: 33 Year
  Sex: Male
  Weight: 72 kg

DRUGS (2)
  1. LAMISIL [Suspect]
     Indication: NAIL TINEA
     Dosage: 250 MG, QD
     Route: 048
     Dates: start: 20051115, end: 20051230
  2. LAMISIL [Suspect]
     Dosage: 250 MG, QD
     Dates: start: 20060201, end: 20060201

REACTIONS (3)
  - BACK PAIN [None]
  - DYSURIA [None]
  - RENAL COLIC [None]
